FAERS Safety Report 5242437-7 (Version None)
Quarter: 2007Q1

REPORT INFORMATION
  Report Type: 
  Country: None (occurrence: None)
  Receive Date: 20070214
  Receipt Date: 20070201
  Transmission Date: 20070707
  Serious: Yes (Hospitalization)
  Sender: FDA-Public Use
  Company Number: 2007PV029396

PATIENT
  Age: 72 Year
  Sex: Female
  Weight: 170 kg

DRUGS (10)
  1. BYETTA [Suspect]
     Indication: DIABETES MELLITUS NON-INSULIN-DEPENDENT
     Dosage: 5 MCG; SC
     Route: 058
     Dates: start: 20070101, end: 20070101
  2. GLUCOPHAGE [Concomitant]
  3. NOVOLIN R [Concomitant]
  4. CYMBALTA [Concomitant]
  5. LORAZEPAM [Concomitant]
  6. ASPIRIN [Concomitant]
  7. HYDROCHLOROTHIAZIDE [Concomitant]
  8. METOPROLOL SUCCINATE [Concomitant]
  9. ENALAPRIL MALEATE [Concomitant]
  10. NOVOLOG [Concomitant]

REACTIONS (1)
  - ATRIAL FIBRILLATION [None]
